FAERS Safety Report 18068952 (Version 2)
Quarter: 2020Q3

REPORT INFORMATION
  Report Type: Report from Study
  Country: US (occurrence: US)
  Receive Date: 20200724
  Receipt Date: 20200929
  Transmission Date: 20201103
  Serious: Yes (Other)
  Sender: FDA-Public Use
  Company Number: US-BAXTER-2020BAX014840

PATIENT
  Age: 4 Year
  Sex: Female
  Weight: 19.9 kg

DRUGS (10)
  1. CYCLOPHOSPHAMIDE FOR INJECTION, USP [Suspect]
     Active Substance: CYCLOPHOSPHAMIDE
     Dosage: LAST ADMINISTERED DATE WITH TOTAL DOSE ADMINISTERED IN THIS COURSE: 1900 MG
     Route: 042
     Dates: start: 20200602, end: 20200602
  2. TEMSIROLIMUS. [Suspect]
     Active Substance: TEMSIROLIMUS
     Indication: EMBRYONAL RHABDOMYOSARCOMA
     Dosage: 15 MG/M2 (MAX DOSE 25MG) IV OVER 30?60 MINUTES ON DAYS 1, 8, AND 15
     Route: 042
     Dates: start: 20200422
  3. VINCRISTINE SULFATE. [Suspect]
     Active Substance: VINCRISTINE SULFATE
     Dosage: LAST ADMINISTERED DATE WITH TOTAL DOSE ADMINISTERED IN THIS COURSE: 8.3 MG
     Route: 042
     Dates: start: 20200602, end: 20200602
  4. DACTINOMYCIN [Suspect]
     Active Substance: DACTINOMYCIN
     Indication: EMBRYONAL RHABDOMYOSARCOMA
     Dosage: 0.05 MG/KG (MAX DOSE 2.5MG) OR IV OVER 1?5 MINUTES ON DAY 1 OF CYCLES 1 AND 3
     Route: 042
     Dates: start: 20200422
  5. TEMSIROLIMUS. [Suspect]
     Active Substance: TEMSIROLIMUS
     Dosage: LAST ADMINISTERED DATE WITH TOTAL DOSE ADMINISTERED IN THIS COURSE 92.1 MG.
     Route: 042
     Dates: start: 20200609, end: 20200609
  6. IRINOTECAN HCL [Suspect]
     Active Substance: IRINOTECAN HYDROCHLORIDE
     Indication: EMBRYONAL RHABDOMYOSARCOMA
     Dosage: 50 MG/M2, IV OVER 90 MINUTES ON DAYS 1?5 OF CYCLE 2 AND 4
     Route: 042
     Dates: start: 20200512
  7. DACTINOMYCIN [Suspect]
     Active Substance: DACTINOMYCIN
     Dosage: LAST ADMINISTERED DATE WITH TOTAL DOSE ADMINISTERED IN THIS COURSE: 1.95 MG
     Route: 042
     Dates: start: 20200602, end: 20200602
  8. VINCRISTINE SULFATE. [Suspect]
     Active Substance: VINCRISTINE SULFATE
     Indication: EMBRYONAL RHABDOMYOSARCOMA
     Dosage: 1.5 MG/M2, OVER 1 MINUTE OR INFUSION VIA MINIBAG ON DAYS 1, 8, AND 15
     Route: 042
     Dates: start: 20200422
  9. IRINOTECAN HCL [Suspect]
     Active Substance: IRINOTECAN HYDROCHLORIDE
     Dosage: LAST ADMINISTERED DATE WITH TOTAL DOSE ADMINISTERED IN THIS COURSE: 195 MG
     Route: 042
     Dates: start: 20200516, end: 20200516
  10. CYCLOPHOSPHAMIDE FOR INJECTION, USP [Suspect]
     Active Substance: CYCLOPHOSPHAMIDE
     Indication: EMBRYONAL RHABDOMYOSARCOMA
     Dosage: 1200MG/M2, IV OVER 60 MINUTES ON DAY 1 OF CYCLES 1 AND 3.
     Route: 042
     Dates: start: 20200422

REACTIONS (1)
  - Proteinuria [Not Recovered/Not Resolved]

NARRATIVE: CASE EVENT DATE: 20200616
